FAERS Safety Report 13068901 (Version 4)
Quarter: 2017Q2

REPORT INFORMATION
  Report Type: Report from Study
  Country: US (occurrence: US)
  Receive Date: 20161228
  Receipt Date: 20170426
  Transmission Date: 20170830
  Serious: Yes (Hospitalization)
  Sender: FDA-Public Use
  Company Number: US-ACTELION-A-US2016-135311

PATIENT
  Age: 76 Year
  Sex: Female
  Weight: 52.61 kg

DRUGS (9)
  1. UPTRAVI [Suspect]
     Active Substance: SELEXIPAG
     Dosage: 200 MCG, BID
     Route: 048
     Dates: start: 20160404
  2. UPTRAVI [Suspect]
     Active Substance: SELEXIPAG
     Dosage: 200 UNK, UNK
     Route: 048
  3. UPTRAVI [Suspect]
     Active Substance: SELEXIPAG
     Dosage: 1000 MCG, BID
     Route: 048
  4. UPTRAVI [Suspect]
     Active Substance: SELEXIPAG
     Indication: PULMONARY ARTERIAL HYPERTENSION
     Dosage: 400 MCG, BID
     Route: 048
  5. UPTRAVI [Suspect]
     Active Substance: SELEXIPAG
     Dosage: 1200 MCG, UNK
     Route: 048
  6. ADEMPAS [Concomitant]
     Active Substance: RIOCIGUAT
  7. TRACLEER [Suspect]
     Active Substance: BOSENTAN
     Indication: PULMONARY ARTERIAL HYPERTENSION
     Dosage: 125 MG, BID
     Route: 048
     Dates: start: 20130508
  8. TYVASO [Suspect]
     Active Substance: TREPROSTINIL
     Indication: PULMONARY HYPERTENSION
     Dosage: 18-54 MCG (3-9 BREATHS) QID
     Route: 055
     Dates: start: 20130522
  9. UPTRAVI [Suspect]
     Active Substance: SELEXIPAG
     Dosage: 800 MCG, BID
     Route: 048

REACTIONS (21)
  - Abdominal discomfort [Unknown]
  - Condition aggravated [Unknown]
  - Constipation [Unknown]
  - Nasal congestion [Unknown]
  - Lung disorder [Unknown]
  - Pain in extremity [Unknown]
  - Asthenia [Unknown]
  - Diuretic therapy [Unknown]
  - Oedema peripheral [Unknown]
  - Renal failure [Unknown]
  - Dialysis [Unknown]
  - Memory impairment [Unknown]
  - Abdominal distension [Unknown]
  - Weight increased [Unknown]
  - Insomnia [Unknown]
  - Fluid retention [Unknown]
  - Nausea [Recovered/Resolved]
  - Abdominal pain upper [Recovered/Resolved]
  - Localised oedema [Unknown]
  - Dyspnoea [Unknown]
  - Malaise [Unknown]

NARRATIVE: CASE EVENT DATE: 201604
